FAERS Safety Report 4895696-4 (Version None)
Quarter: 2006Q1

REPORT INFORMATION
  Report Type: 
  Country: None (occurrence: None)
  Receive Date: 20060125
  Receipt Date: 20060116
  Transmission Date: 20060701
  Serious: Yes (Other)
  Sender: FDA-Public Use
  Company Number: 143789USA

PATIENT
  Age: 49 Year
  Sex: Male

DRUGS (2)
  1. MERCAPTOPURINE [Suspect]
     Indication: CROHN'S DISEASE
     Dosage: 75 MILLIGRAM QD ORAL
     Route: 048
     Dates: start: 20000101
  2. REMICADE [Suspect]
     Indication: CROHN'S DISEASE
     Dates: start: 19980101

REACTIONS (2)
  - BASOSQUAMOUS CARCINOMA [None]
  - SKIN CANCER [None]
